FAERS Safety Report 4304712-X (Version None)
Quarter: 2004Q1

REPORT INFORMATION
  Report Type: 
  Country: None (occurrence: None)
  Receive Date: 20040226
  Receipt Date: 20031120
  Transmission Date: 20041129
  Serious: No
  Sender: FDA-Public Use
  Company Number: US-GLAXOSMITHKLINE-A0440611A

PATIENT
  Sex: Male

DRUGS (4)
  1. WELLBUTRIN [Suspect]
     Indication: DEPRESSION
     Dosage: 150MG PER DAY
     Route: 048
     Dates: start: 20031115
  2. XANAX [Concomitant]
  3. PEGASYS [Concomitant]
  4. COPEGUS [Concomitant]

REACTIONS (1)
  - DRUG INEFFECTIVE [None]
